FAERS Safety Report 18290324 (Version 1)
Quarter: 2020Q3

REPORT INFORMATION
  Report Type: Report from Study
  Country: CA (occurrence: CA)
  Receive Date: 20200921
  Receipt Date: 20200921
  Transmission Date: 20201103
  Serious: Yes (Other)
  Sender: FDA-Public Use
  Company Number: CA-JNJFOC-20200921497

PATIENT
  Age: 64 Year
  Sex: Male

DRUGS (2)
  1. STELARA [Suspect]
     Active Substance: USTEKINUMAB
     Indication: CROHN^S DISEASE
     Dosage: ON 09?SEP?2020, THE PATIENT RECEIVED 31ST  USTEKINUMAB  INFUSION FOR DOSE OF 90 MG AND PARTIAL HARVE
     Route: 058
     Dates: start: 20171211
  2. STELARA [Suspect]
     Active Substance: USTEKINUMAB

REACTIONS (4)
  - Abdominal pain lower [Recovering/Resolving]
  - Diarrhoea [Unknown]
  - Frequent bowel movements [Unknown]
  - Diverticulitis [Unknown]

NARRATIVE: CASE EVENT DATE: 20200831
